FAERS Safety Report 8813326 (Version 2)
Quarter: 2013Q4

REPORT INFORMATION
  Report Type: Spontaneous
  Country: US (occurrence: US)
  Receive Date: 20120927
  Receipt Date: 20131008
  Transmission Date: 20140711
  Serious: No
  Sender: FDA-Public Use
  Company Number: US-AMGEN-USASP2012045865

PATIENT
  Age: 53 Year
  Sex: Female

DRUGS (2)
  1. PROLIA [Suspect]
     Indication: OSTEOPOROSIS POSTMENOPAUSAL
     Dosage: 60 MG, Q6MO
     Route: 065
     Dates: start: 20120625
  2. TETANUS VACCINE [Concomitant]
     Dosage: UNK
     Route: 065

REACTIONS (8)
  - Immune system disorder [Unknown]
  - Dry mouth [Not Recovered/Not Resolved]
  - Mouth injury [Not Recovered/Not Resolved]
  - Cheilitis [Not Recovered/Not Resolved]
  - Oral lichen planus [Unknown]
  - Infection [Unknown]
  - Swelling face [Unknown]
  - Dermatitis [Not Recovered/Not Resolved]
